FAERS Safety Report 5796278-2 (Version None)
Quarter: 2008Q2

REPORT INFORMATION
  Report Type: 
  Country: None (occurrence: None)
  Receive Date: 20080626
  Receipt Date: 20080611
  Transmission Date: 20081010
  Serious: Yes (Hospitalization)
  Sender: FDA-Public Use
  Company Number: 2008AL005388

PATIENT
  Age: 90 Year
  Sex: Female
  Weight: 50.8029 kg

DRUGS (1)
  1. DIGOXIN [Suspect]
     Indication: ATRIAL FIBRILLATION
     Dosage: 0.125MG DAILY PO
     Route: 048

REACTIONS (4)
  - FATIGUE [None]
  - HEART RATE DECREASED [None]
  - NAUSEA [None]
  - URINARY TRACT INFECTION [None]
